FAERS Safety Report 10437899 (Version 1)
Quarter: 2014Q3

REPORT INFORMATION
  Report Type: Spontaneous
  Country: US (occurrence: US)
  Receive Date: 20140908
  Receipt Date: 20140908
  Transmission Date: 20150326
  Serious: No
  Sender: FDA-Public Use
  Company Number: US-BRISTOL-MYERS SQUIBB COMPANY-21044847

PATIENT
  Age: 12 Year
  Sex: Male

DRUGS (1)
  1. ABILIFY [Suspect]
     Active Substance: ARIPIPRAZOLE
     Indication: ATTENTION DEFICIT/HYPERACTIVITY DISORDER
     Dosage: 15 MG?DOSE REDUCED:10 MG?THE END OF APRIL OR MAY OF 2014:STOP DATE
     Dates: start: 2011

REACTIONS (3)
  - Asocial behaviour [Unknown]
  - Off label use [Unknown]
  - Somnolence [Unknown]
